FAERS Safety Report 13346603 (Version 7)
Quarter: 2017Q3

REPORT INFORMATION
  Report Type: Report from Study
  Country: US (occurrence: US)
  Receive Date: 20170317
  Receipt Date: 20170703
  Transmission Date: 20171127
  Serious: Yes (Hospitalization, Other)
  Sender: FDA-Public Use
  Company Number: US-GILEAD-2017-0253583

PATIENT
  Age: 36 Year
  Sex: Male
  Weight: 61 kg

DRUGS (2)
  1. AMBRISENTAN [Suspect]
     Active Substance: AMBRISENTAN
     Indication: SICKLE CELL ANAEMIA
  2. AMBRISENTAN [Suspect]
     Active Substance: AMBRISENTAN
     Indication: PULMONARY HYPERTENSION
     Dosage: 5 MG, QD
     Route: 048
     Dates: start: 20160825

REACTIONS (20)
  - Nasal congestion [Unknown]
  - Pyrexia [Recovered/Resolved]
  - Anaemia [Recovered/Resolved]
  - Nausea [Unknown]
  - Rhinitis allergic [Not Recovered/Not Resolved]
  - Abdominal discomfort [Unknown]
  - Sinus disorder [Not Recovered/Not Resolved]
  - Palpitations [Unknown]
  - Clostridium difficile infection [Recovered/Resolved]
  - Infection [Recovered/Resolved]
  - Sickle cell anaemia with crisis [Not Recovered/Not Resolved]
  - Sinusitis [Recovered/Resolved]
  - Device issue [Unknown]
  - Arthralgia [Not Recovered/Not Resolved]
  - Throat irritation [Unknown]
  - Cough [Unknown]
  - Flushing [Unknown]
  - Angioedema [Recovered/Resolved]
  - Upper respiratory tract infection [Unknown]
  - Headache [Unknown]

NARRATIVE: CASE EVENT DATE: 20170405
